FAERS Safety Report 16180909 (Version 2)
Quarter: 2019Q2

REPORT INFORMATION
  Report Type: Report from Study
  Country: US (occurrence: US)
  Receive Date: 20190410
  Receipt Date: 20190501
  Transmission Date: 20190711
  Serious: Yes (Hospitalization, Other)
  Sender: FDA-Public Use
  Company Number: US-EXELIXIS-CABO-19019598

PATIENT
  Sex: Male
  Weight: 68.27 kg

DRUGS (1)
  1. CABOMETYX [Suspect]
     Active Substance: CABOZANTINIB S-MALATE
     Indication: RENAL CANCER
     Dosage: 60 MG, QD
     Route: 048
     Dates: start: 20190124

REACTIONS (8)
  - Eating disorder [Unknown]
  - Asthenia [Unknown]
  - Diarrhoea [Unknown]
  - Sinus headache [Unknown]
  - Unresponsive to stimuli [Unknown]
  - Hallucination [Unknown]
  - Weight decreased [Unknown]
  - Insomnia [Unknown]
